FAERS Safety Report 23290168 (Version 1)
Quarter: 2023Q4

REPORT INFORMATION
  Report Type: Spontaneous
  Country: CH (occurrence: CH)
  Receive Date: 20231213
  Receipt Date: 20231213
  Transmission Date: 20240109
  Serious: Yes (Other)
  Sender: FDA-Public Use
  Company Number: CH-ALKEM LABORATORIES LIMITED-CH-ALKEM-2023-15441

PATIENT
  Age: 5 Month

DRUGS (2)
  1. VIGABATRIN [Suspect]
     Active Substance: VIGABATRIN
     Indication: Infantile spasms
     Dosage: 150 MILLIGRAM/KILOGRAM, QD (PER DAY)
     Route: 065
  2. HYDROCORTISONE [Concomitant]
     Active Substance: HYDROCORTISONE
     Indication: Infantile spasms
     Dosage: 12 MILLIGRAM/KILOGRAM, QD (PER DAY)
     Route: 065

REACTIONS (6)
  - Bradycardia [Recovering/Resolving]
  - Opisthotonus [Recovering/Resolving]
  - Dystonia [Recovering/Resolving]
  - Encephalopathy [Recovering/Resolving]
  - Hypotonia [Recovering/Resolving]
  - Magnetic resonance imaging head abnormal [Recovering/Resolving]
